FAERS Safety Report 21093112 (Version 1)
Quarter: 2022Q3

REPORT INFORMATION
  Report Type: Report from Study
  Country: US (occurrence: US)
  Receive Date: 20220718
  Receipt Date: 20220718
  Transmission Date: 20221026
  Serious: Yes (Hospitalization, Other)
  Sender: FDA-Public Use
  Company Number: US-BRISTOL-MYERS SQUIBB COMPANY-BMS-2022-037174

PATIENT
  Age: 4 Year
  Sex: Male
  Weight: 16.6 kg

DRUGS (6)
  1. DASATINIB [Suspect]
     Active Substance: DASATINIB
     Indication: Precursor B-lymphoblastic lymphoma
     Route: 048
     Dates: start: 20190301
  2. MERCAPTOPURINE [Suspect]
     Active Substance: MERCAPTOPURINE
     Indication: Precursor B-lymphoblastic lymphoma
     Route: 048
     Dates: end: 20200526
  3. METHOTREXATE SODIUM [Suspect]
     Active Substance: METHOTREXATE SODIUM
     Indication: Precursor B-lymphoblastic lymphoma
     Route: 042
     Dates: end: 20200522
  4. PREDNISOLONE [Suspect]
     Active Substance: PREDNISOLONE
     Indication: Precursor B-lymphoblastic lymphoma
     Route: 048
  5. PREDNISOLONE [Suspect]
     Active Substance: PREDNISOLONE
     Route: 042
  6. VINCRISTINE SULFATE [Suspect]
     Active Substance: VINCRISTINE SULFATE
     Indication: Precursor B-lymphoblastic lymphoma
     Route: 042

REACTIONS (1)
  - Febrile neutropenia [Recovered/Resolved with Sequelae]

NARRATIVE: CASE EVENT DATE: 20200527
